FAERS Safety Report 13152703 (Version 2)
Quarter: 2017Q1

REPORT INFORMATION
  Report Type: Spontaneous
  Country: US (occurrence: US)
  Receive Date: 20170125
  Receipt Date: 20170130
  Transmission Date: 20170428
  Serious: Yes (Other)
  Sender: FDA-Public Use
  Company Number: US-CELGENEUS-USA-2016116744

PATIENT
  Sex: Male
  Weight: 107.14 kg

DRUGS (1)
  1. REVLIMID [Suspect]
     Active Substance: LENALIDOMIDE
     Indication: PLASMA CELL MYELOMA
     Dosage: 10 MG
     Route: 048
     Dates: start: 201412

REACTIONS (3)
  - Pancytopenia [Unknown]
  - White blood cell count decreased [Not Recovered/Not Resolved]
  - Myelodysplastic syndrome [Unknown]
